FAERS Safety Report 6767885-5 (Version None)
Quarter: 2010Q2

REPORT INFORMATION
  Report Type: 
  Country: None (occurrence: None)
  Receive Date: 20100614
  Receipt Date: 20100604
  Transmission Date: 20101027
  Serious: Yes (Other)
  Sender: FDA-Public Use
  Company Number: AU-SANOFI-AVENTIS-2010SA032259

PATIENT
  Age: 77 Year
  Sex: Male

DRUGS (1)
  1. ARAVA [Suspect]
     Dates: start: 20071212

REACTIONS (2)
  - GINGIVITIS [None]
  - SKIN CANCER [None]
